FAERS Safety Report 5390238-1 (Version None)
Quarter: 2007Q3

REPORT INFORMATION
  Report Type: 
  Country: None (occurrence: None)
  Receive Date: 20070718
  Receipt Date: 20070712
  Transmission Date: 20080115
  Serious: Yes (Life-Threatening)
  Sender: FDA-Public Use
  Company Number: CN-ASTRAZENECA-2007AP04085

PATIENT
  Age: 19 Year
  Sex: Female

DRUGS (3)
  1. LIDOCAINE [Suspect]
     Indication: ABORTION INDUCED
     Route: 065
     Dates: start: 20070702, end: 20070702
  2. PROPOFOL [Suspect]
     Indication: ABORTION INDUCED
     Route: 042
     Dates: start: 20070702, end: 20070702
  3. FENTANYL TRANSDERMAL SYSTEM [Suspect]
     Indication: ABORTION INDUCED
     Route: 065
     Dates: start: 20070702, end: 20070702

REACTIONS (3)
  - CARDIAC ARREST [None]
  - COMA [None]
  - RESPIRATORY DEPRESSION [None]
